APPROVED DRUG PRODUCT: AMIODARONE HYDROCHLORIDE
Active Ingredient: AMIODARONE HYDROCHLORIDE
Strength: 200MG
Dosage Form/Route: TABLET;ORAL
Application: A074739 | Product #001 | TE Code: AB
Applicant: TEVA PHARMACEUTICALS USA
Approved: Nov 30, 1998 | RLD: No | RS: No | Type: RX